FAERS Safety Report 13479646 (Version 1)
Quarter: 2020Q3

REPORT INFORMATION
  Report Type: Report from Study
  Country: US (occurrence: US)
  Receive Date: 20170424
  Receipt Date: 20170424
  Transmission Date: 20201105
  Serious: Yes (Hospitalization)
  Sender: FDA-Public Use
  Company Number: US-BAXALTA-2017BLT003161

PATIENT
  Age: 23 Year
  Sex: Male

DRUGS (27)
  1. FEIBA [Suspect]
     Active Substance: ANTI-INHIBITOR COAGULANT COMPLEX
     Dosage: 278.33 IU/KG, 5200 IU, TOTAL
     Route: 042
     Dates: start: 20160718, end: 20160718
  2. EMICIZUMAB. [Suspect]
     Active Substance: EMICIZUMAB
     Indication: HAEMOPHILIA A WITH ANTI FACTOR VIII
     Dosage: LAST DOSE RECEIVED ON 15JUL2016: 0.61 ML, 1X A WEEK
     Route: 058
     Dates: start: 20160308
  3. DOCUSATE [Concomitant]
     Active Substance: DOCUSATE
     Indication: CONSTIPATION PROPHYLAXIS
  4. ONDANSETRON [Concomitant]
     Active Substance: ONDANSETRON
     Indication: NAUSEA
  5. VOLTAREN [Concomitant]
     Active Substance: DICLOFENAC SODIUM
     Indication: PAIN
  6. BISACODYL. [Concomitant]
     Active Substance: BISACODYL
     Indication: CONSTIPATION
  7. CEFTRIAXONE                        /00672202/ [Concomitant]
     Active Substance: CEFTRIAXONE
     Indication: INFECTION PROPHYLAXIS
  8. CELECOXIB. [Concomitant]
     Active Substance: CELECOXIB
     Indication: PLEURITIC PAIN
  9. GADOBUTROL. [Concomitant]
     Active Substance: GADOBUTROL
     Indication: SCAN WITH CONTRAST
  10. FEIBA [Suspect]
     Active Substance: ANTI-INHIBITOR COAGULANT COMPLEX
     Dosage: 260 IU/KG, 5200 IU, TOTAL
     Route: 042
     Dates: start: 20160717, end: 20160717
  11. FEIBA [Suspect]
     Active Substance: ANTI-INHIBITOR COAGULANT COMPLEX
     Dosage: 278.33 IU/KG, 5200 IU, TOTAL
     Route: 042
     Dates: start: 20160718, end: 20160718
  12. FEIBA [Suspect]
     Active Substance: ANTI-INHIBITOR COAGULANT COMPLEX
     Dosage: 260 IU/KG, 5200 IU, TOTAL
     Route: 042
     Dates: start: 20160717, end: 20160717
  13. FEIBA [Suspect]
     Active Substance: ANTI-INHIBITOR COAGULANT COMPLEX
     Dosage: 278.33 IU/KG, 6300 IU, TOTAL
     Route: 042
     Dates: start: 20160718, end: 20160718
  14. RED BLOOD CELLS [Concomitant]
     Active Substance: HUMAN RED BLOOD CELL
     Indication: ANAEMIA
  15. FEIBA [Suspect]
     Active Substance: ANTI-INHIBITOR COAGULANT COMPLEX
     Dosage: 260 IU/KG, 5200 IU, TOTAL
     Route: 042
     Dates: start: 20160717, end: 20160717
  16. OMEPRAZOLE. [Concomitant]
     Active Substance: OMEPRAZOLE
     Indication: GASTRIC ULCER
  17. FEIBA [Suspect]
     Active Substance: ANTI-INHIBITOR COAGULANT COMPLEX
     Dosage: 88.33 IU/KG, 5300 IU, TOTAL
     Route: 042
     Dates: start: 20160719, end: 20160719
  18. NALBUPHINE [Concomitant]
     Active Substance: NALBUPHINE
     Indication: PRURITUS
  19. FEIBA [Suspect]
     Active Substance: ANTI-INHIBITOR COAGULANT COMPLEX
     Indication: HAEMARTHROSIS
     Dosage: 83.33 IU/KG, 5000 IU, TOTAL
     Route: 042
     Dates: start: 20160716, end: 20160716
  20. AMOXICILLIN. [Concomitant]
     Active Substance: AMOXICILLIN
     Indication: PNEUMONIA
  21. DIPHENHYDRAMINE. [Concomitant]
     Active Substance: DIPHENHYDRAMINE
     Indication: NAUSEA
  22. DIPHENHYDRAMINE. [Concomitant]
     Active Substance: DIPHENHYDRAMINE
     Indication: VOMITING
  23. PANTOPRAZOLE [Concomitant]
     Active Substance: PANTOPRAZOLE
     Indication: PROPHYLAXIS AGAINST GASTROINTESTINAL ULCER
  24. POLYETHYLENE GLYCOL [Concomitant]
     Active Substance: POLYETHYLENE GLYCOLS
     Indication: LAXATIVE SUPPORTIVE CARE
  25. FERROUS SULFATE. [Concomitant]
     Active Substance: FERROUS SULFATE
     Indication: MINERAL SUPPLEMENTATION
  26. ONDANSETRON [Concomitant]
     Active Substance: ONDANSETRON
     Indication: VOMITING
  27. SUCRALFATE. [Concomitant]
     Active Substance: SUCRALFATE
     Indication: PRODUCT USED FOR UNKNOWN INDICATION

REACTIONS (1)
  - Cavernous sinus thrombosis [Recovered/Resolved]

NARRATIVE: CASE EVENT DATE: 20160719
